FAERS Safety Report 14955742 (Version 36)
Quarter: 2025Q2

REPORT INFORMATION
  Report Type: Report from Study
  Country: DE (occurrence: DE)
  Receive Date: 20180531
  Receipt Date: 20250530
  Transmission Date: 20250716
  Serious: Yes (Hospitalization, Other)
  Sender: ROCHE
  Company Number: DE-ROCHE-2130177

PATIENT
  Age: 51 Year
  Sex: Female
  Weight: 60.0 kg

DRUGS (16)
  1. OCREVUS [Suspect]
     Active Substance: OCRELIZUMAB
     Indication: Relapsing-remitting multiple sclerosis
     Route: 042
     Dates: start: 20180523
  2. OCREVUS [Suspect]
     Active Substance: OCRELIZUMAB
     Route: 042
     Dates: start: 20181212
  3. CORTISONE [Suspect]
     Active Substance: CORTISONE
     Indication: Product used for unknown indication
     Route: 065
  4. TRIAMCINOLONE ACETONIDE [Suspect]
     Active Substance: TRIAMCINOLONE ACETONIDE
     Indication: Product used for unknown indication
     Dosage: ADMINISTERD INTO THE LIQUOR CEREBROSPINALIS?LAST DOSE: 04/OCT/2018
     Route: 065
  5. TRIAMCINOLONE ACETONIDE [Suspect]
     Active Substance: TRIAMCINOLONE ACETONIDE
     Dosage: ADMINISTERD INTO THE LIQUOR CEREBROSPINALIS?26/JUN/2019
     Route: 065
  6. INFLUENZA VIRUS VACCINE [Suspect]
     Active Substance: INFLUENZA VIRUS VACCINE
     Indication: Product used for unknown indication
     Route: 065
     Dates: end: 20181018
  7. NITROFURANTOIN [Suspect]
     Active Substance: NITROFURANTOIN
     Indication: Product used for unknown indication
     Route: 065
  8. FOSFOMYCIN [Suspect]
     Active Substance: FOSFOMYCIN
     Indication: Urinary tract infection
     Route: 065
  9. FOSFOMYCIN [Suspect]
     Active Substance: FOSFOMYCIN
     Route: 065
  10. CHOLECALCIFEROL [Concomitant]
     Active Substance: CHOLECALCIFEROL
  11. ACETAMINOPHEN [Concomitant]
     Active Substance: ACETAMINOPHEN
  12. DOMPERIDONE [Concomitant]
     Active Substance: DOMPERIDONE
  13. RAMIPRIL [Concomitant]
     Active Substance: RAMIPRIL
  14. NABIXIMOLS [Concomitant]
     Active Substance: NABIXIMOLS
  15. ESTRIOL [Concomitant]
     Active Substance: ESTRIOL
  16. SULFAMETHOXAZOLE\TRIMETHOPRIM [Concomitant]
     Active Substance: SULFAMETHOXAZOLE\TRIMETHOPRIM
     Indication: Prophylaxis
     Dosage: 480 MG / 5 ML

REACTIONS (49)
  - Dysphagia [Recovered/Resolved]
  - Hyperthermia [Recovered/Resolved]
  - Hypertension [Recovered/Resolved]
  - Cardiovascular disorder [Recovered/Resolved]
  - Paraesthesia [Recovered/Resolved]
  - Headache [Recovered/Resolved]
  - Skin exfoliation [Recovered/Resolved]
  - Dry skin [Recovered/Resolved]
  - Arthralgia [Recovered/Resolved]
  - Hyperhidrosis [Recovered/Resolved]
  - Chronic gastritis [Unknown]
  - Influenza like illness [Recovered/Resolved]
  - Fatigue [Recovering/Resolving]
  - Limb discomfort [Recovering/Resolving]
  - Muscle spasticity [Not Recovered/Not Resolved]
  - Glomerular filtration rate decreased [Recovered/Resolved]
  - Urinary tract infection [Recovered/Resolved]
  - Multiple sclerosis relapse [Recovering/Resolving]
  - Blood pressure increased [Recovered/Resolved]
  - Fluid retention [Recovered/Resolved]
  - Periorbital swelling [Recovering/Resolving]
  - Urinary tract infection [Recovered/Resolved]
  - Blood pressure increased [Unknown]
  - Periorbital swelling [Not Recovered/Not Resolved]
  - Arthropod bite [Recovered/Resolved]
  - Drug hypersensitivity [Recovered/Resolved]
  - Tongue coated [Recovered/Resolved]
  - Abdominal pain upper [Unknown]
  - Pharyngeal disorder [Recovered/Resolved]
  - Vulvovaginal mycotic infection [Recovering/Resolving]
  - Rhinorrhoea [Recovered/Resolved]
  - Immune system disorder [Not Recovered/Not Resolved]
  - Osteoporosis [Not Recovered/Not Resolved]
  - Migraine [Recovering/Resolving]
  - Infection susceptibility increased [Not Recovered/Not Resolved]
  - Fatigue [Not Recovered/Not Resolved]
  - Listless [Not Recovered/Not Resolved]
  - Herpes virus infection [Recovered/Resolved]
  - Vaginal discharge [Not Recovered/Not Resolved]
  - Fluid retention [Recovered/Resolved]
  - Depressed mood [Recovered/Resolved]
  - Pseudomonas infection [Recovered/Resolved]
  - Back pain [Recovered/Resolved]
  - Cystitis [Unknown]
  - Blood pressure increased [Not Recovered/Not Resolved]
  - Fungal infection [Recovered/Resolved]
  - Fall [Unknown]
  - Contusion [Recovered/Resolved]
  - Hypertension [Recovered/Resolved]

NARRATIVE: CASE EVENT DATE: 20180523
